FAERS Safety Report 24147431 (Version 1)
Quarter: 2024Q3

REPORT INFORMATION
  Report Type: Spontaneous
  Country: NO (occurrence: NO)
  Receive Date: 20240729
  Receipt Date: 20240729
  Transmission Date: 20241017
  Serious: Yes (Life-Threatening, Hospitalization)
  Sender: PFIZER
  Company Number: None

PATIENT
  Age: 57 Year
  Sex: Male

DRUGS (3)
  1. KETALAR [Suspect]
     Active Substance: KETAMINE HYDROCHLORIDE
     Indication: Depression
     Dosage: 0.5-1.0 MG/KG, 3 INJECTIONS IN TOTAL
     Route: 030
     Dates: start: 20240703, end: 20240709
  2. KETALAR [Suspect]
     Active Substance: KETAMINE HYDROCHLORIDE
     Dosage: 0.5-1.0 MG/KG, 3 INJECTIONS IN TOTAL
     Route: 042
     Dates: start: 20240703, end: 20240709
  3. KETALAR [Suspect]
     Active Substance: KETAMINE HYDROCHLORIDE
     Dosage: 0.5-1.0 MG/KG, 3 INJECTIONS IN TOTAL
     Dates: start: 20240703, end: 20240709

REACTIONS (5)
  - Suicide attempt [Recovering/Resolving]
  - Off label use [Recovering/Resolving]
  - Drug ineffective for unapproved indication [Recovering/Resolving]
  - Hallucination, visual [Recovering/Resolving]
  - Suicidal ideation [Recovering/Resolving]

NARRATIVE: CASE EVENT DATE: 20240703
